FAERS Safety Report 9541441 (Version 1)
Quarter: 2013Q3

REPORT INFORMATION
  Report Type: Spontaneous
  Country: US (occurrence: None)
  Receive Date: 20130919
  Receipt Date: 20130919
  Transmission Date: 20140515
  Serious: Yes (Disabling)
  Sender: FDA-Public Use
  Company Number: None

PATIENT
  Sex: Male
  Weight: 94.35 kg

DRUGS (1)
  1. VIAGRA 100 MG PFIZER [Suspect]
     Indication: ERECTILE DYSFUNCTION
     Dates: start: 1999, end: 201301

REACTIONS (2)
  - Optic atrophy [None]
  - Blindness unilateral [None]
